FAERS Safety Report 8834525 (Version 1)
Quarter: 2012Q4

REPORT INFORMATION
  Report Type: 
  Country: TR (occurrence: TR)
  Receive Date: 20121010
  Receipt Date: 20121010
  Transmission Date: 20130627
  Serious: Yes (Hospitalization)
  Sender: FDA-Public Use
  Company Number: TR-PFIZER INC-2012237503

PATIENT
  Age: 82 Year
  Sex: Male

DRUGS (4)
  1. TYGACIL [Suspect]
     Dosage: 100 mg, UNK loading dose
     Dates: start: 20120910
  2. TYGACIL [Suspect]
     Dosage: 50 mg, 2x/day (in the morning and in the evening)
     Dates: start: 201209, end: 20120921
  3. ASPIRIN ^BAYER^ [Concomitant]
  4. CLEXANE [Concomitant]

REACTIONS (7)
  - Cerebrovascular accident [Unknown]
  - Embolism [Unknown]
  - Decubitus ulcer [Unknown]
  - Leukocytosis [Unknown]
  - Aspartate aminotransferase increased [Unknown]
  - Alanine aminotransferase increased [Unknown]
  - Ocular icterus [Not Recovered/Not Resolved]
